FAERS Safety Report 5044723-2 (Version None)
Quarter: 2006Q3

REPORT INFORMATION
  Report Type: 
  Country: None (occurrence: None)
  Receive Date: 20060707
  Receipt Date: 20060628
  Transmission Date: 20061208
  Serious: Yes (Other)
  Sender: FDA-Public Use
  Company Number: FI-JNJFOC-20060606158

PATIENT
  Age: 5 Decade
  Sex: Female

DRUGS (1)
  1. REMICADE [Suspect]
     Indication: COLITIS
     Route: 042

REACTIONS (1)
  - ENCEPHALITIS HERPES [None]
